FAERS Safety Report 4577853-X (Version None)
Quarter: 2005Q1

REPORT INFORMATION
  Report Type: 
  Country: None (occurrence: None)
  Receive Date: 20050209
  Receipt Date: 20050201
  Transmission Date: 20050727
  Serious: Yes (Other)
  Sender: FDA-Public Use
  Company Number: 2005JP000116

PATIENT
  Age: 57 Year
  Sex: Male

DRUGS (5)
  1. PROGRAF [Suspect]
     Indication: RENAL TRANSPLANT
  2. MYCOPHENOLATE MOFETIL (MYCOPHENOLATE MOFETIL) CAPSULE [Suspect]
     Indication: RENAL TRANSPLANT
     Dosage: ORAL
     Route: 048
  3. METHYLPREDNISOLONE [Concomitant]
  4. IMMUNOGLOBULIN CYTOMEGALOVIRUS [Concomitant]
  5. GUSPERIMUS HYDROCHLORIDE [Concomitant]

REACTIONS (2)
  - ANAEMIA HAEMOLYTIC AUTOIMMUNE [None]
  - CYTOMEGALOVIRUS HEPATITIS [None]
